FAERS Safety Report 22661724 (Version 1)
Quarter: 2023Q2

REPORT INFORMATION
  Report Type: Spontaneous
  Country: KR (occurrence: KR)
  Receive Date: 20230630
  Receipt Date: 20230630
  Transmission Date: 20230721
  Serious: Yes (Other)
  Sender: FDA-Public Use
  Company Number: KR-JAZZ-2023-KR-002867

PATIENT
  Age: 18 Year
  Sex: Female
  Weight: 48 kg

DRUGS (2)
  1. CANNABIDIOL [Suspect]
     Active Substance: CANNABIDIOL
     Indication: Lennox-Gastaut syndrome
     Dosage: 1 MILLILITER, BID FOR FIRST WEEK
     Route: 048
     Dates: start: 202106, end: 202108
  2. CANNABIDIOL [Suspect]
     Active Substance: CANNABIDIOL
     Dosage: 2 MILLILITER, BID FOR SECOND WEEK
     Route: 048
     Dates: start: 202109, end: 202110

REACTIONS (1)
  - Aggression [Recovered/Resolved]

NARRATIVE: CASE EVENT DATE: 20210701
